FAERS Safety Report 7849575-0 (Version None)
Quarter: 2011Q4

REPORT INFORMATION
  Report Type: 
  Country: None (occurrence: None)
  Receive Date: 20111026
  Receipt Date: 20111017
  Transmission Date: 20120403
  Serious: Yes (Hospitalization, Other)
  Sender: FDA-Public Use
  Company Number: US-JNJFOC-20111008809

PATIENT
  Age: 35 Year
  Sex: Female

DRUGS (6)
  1. ERBITUX [Suspect]
     Indication: HEAD AND NECK CANCER
     Route: 042
     Dates: start: 20110802
  2. OXYCODONE HCL [Suspect]
     Indication: PRODUCT USED FOR UNKNOWN INDICATION
     Route: 065
  3. ERBITUX [Suspect]
     Route: 042
     Dates: end: 20110920
  4. ERBITUX [Suspect]
     Route: 042
  5. FENTANYL-100 [Suspect]
     Indication: PRODUCT USED FOR UNKNOWN INDICATION
     Route: 065
  6. RADIATION THERAPY NOS [Suspect]
     Indication: PRODUCT USED FOR UNKNOWN INDICATION
     Dosage: 60GY 30 NUMBER OF FRACTIONS
     Route: 065

REACTIONS (3)
  - APHONIA [None]
  - MUSCULAR WEAKNESS [None]
  - DEPRESSED LEVEL OF CONSCIOUSNESS [None]
